FAERS Safety Report 21823500 (Version 2)
Quarter: 2023Q1

REPORT INFORMATION
  Report Type: Spontaneous
  Country: US (occurrence: US)
  Receive Date: 20230105
  Receipt Date: 20230217
  Transmission Date: 20230417
  Serious: No
  Sender: FDA-Public Use
  Company Number: US-BIOVITRUM-2023US00167

PATIENT
  Sex: Female
  Weight: 7 kg

DRUGS (5)
  1. SYNAGIS [Suspect]
     Active Substance: PALIVIZUMAB
     Indication: Premature baby
     Dosage: SYNAGIS 50 MG SDV/INJ PF 0.5 ML 1S
  2. PULMICORT TURBUHALER [Concomitant]
     Active Substance: BUDESONIDE
     Dosage: 0.25MG/2ML AMPUL-NEB
  3. FAMOTIDINE [Concomitant]
     Active Substance: FAMOTIDINE
     Dosage: 10 MG/ML VIAL
  4. ALBUTEROL SULFATE [Concomitant]
     Active Substance: ALBUTEROL SULFATE
  5. SYNAGIS [Suspect]
     Active Substance: PALIVIZUMAB
     Indication: Chronic respiratory disease

REACTIONS (1)
  - Influenza [Unknown]
